FAERS Safety Report 10300444 (Version 1)
Quarter: 2014Q3

REPORT INFORMATION
  Report Type: Spontaneous
  Country: CA (occurrence: CA)
  Receive Date: 20140713
  Receipt Date: 20140713
  Transmission Date: 20150326
  Serious: Yes (Hospitalization)
  Sender: FDA-Public Use
  Company Number: PHHY2014CA085546

PATIENT
  Age: 79 Year
  Sex: Female
  Weight: 80 kg

DRUGS (2)
  1. RASILEZ [Suspect]
     Active Substance: ALISKIREN
     Dosage: 300 MG, EVERY 1 DAY
     Route: 048
  2. CO-ENALAPRIL [Suspect]
     Active Substance: ENALAPRIL MALEATE\HYDROCHLOROTHIAZIDE
     Dosage: 40 MG, EVERY 1 DAY
     Route: 048

REACTIONS (4)
  - Proteinuria [Unknown]
  - Blood creatinine increased [Unknown]
  - Renal failure acute [Unknown]
  - Hyperkalaemia [Unknown]
